FAERS Safety Report 14971185 (Version 2)
Quarter: 2018Q2

REPORT INFORMATION
  Report Type: Report from Study
  Country: AU (occurrence: AU)
  Receive Date: 20180604
  Receipt Date: 20180621
  Transmission Date: 20180711
  Serious: Yes (Hospitalization, Disabling, Other)
  Sender: FDA-Public Use
  Company Number: PHHY2017AU172563

PATIENT
  Age: 43 Year
  Sex: Female
  Weight: 54.6 kg

DRUGS (12)
  1. HYDROXYCHLOROQUINE [Concomitant]
     Active Substance: HYDROXYCHLOROQUINE
     Indication: SYSTEMIC LUPUS ERYTHEMATOSUS
     Dosage: 200 MG, QD
     Route: 065
     Dates: start: 2003, end: 20160201
  2. METHOTREXATE. [Concomitant]
     Active Substance: METHOTREXATE
     Indication: PRODUCT USED FOR UNKNOWN INDICATION
     Dosage: 20 MG, QW
     Route: 065
     Dates: start: 20110118
  3. MYFORTIC [Suspect]
     Active Substance: MYCOPHENOLATE SODIUM
     Indication: LUPUS NEPHRITIS
     Dosage: 360 MG, BID
     Route: 048
     Dates: start: 20130704, end: 20160209
  4. MYFORTIC [Suspect]
     Active Substance: MYCOPHENOLATE SODIUM
     Dosage: UNK
     Route: 065
     Dates: start: 20160225
  5. MYFORTIC [Suspect]
     Active Substance: MYCOPHENOLATE SODIUM
     Dosage: 1440 MG, QD
     Route: 048
  6. PREDNISOLONE. [Suspect]
     Active Substance: PREDNISOLONE
     Dosage: 40 MG, QD
     Route: 048
     Dates: start: 20160204
  7. PREDNISOLONE. [Suspect]
     Active Substance: PREDNISOLONE
     Dosage: 50 MG, QD
     Route: 048
     Dates: start: 20160210, end: 20160211
  8. PREDNISOLONE. [Suspect]
     Active Substance: PREDNISOLONE
     Dosage: 25 MG, QD
     Route: 048
     Dates: start: 20160201, end: 20170204
  9. PREDNISOLONE. [Suspect]
     Active Substance: PREDNISOLONE
     Dosage: 40 MG, QD
     Route: 048
     Dates: start: 20160212
  10. PREDNISOLONE. [Suspect]
     Active Substance: PREDNISOLONE
     Dosage: 40 MG, QD
     Route: 048
     Dates: start: 20160208
  11. PREDNISOLONE. [Suspect]
     Active Substance: PREDNISOLONE
     Indication: SYSTEMIC LUPUS ERYTHEMATOSUS
     Dosage: UNK
     Route: 065
     Dates: start: 20130704
  12. PREDNISOLONE. [Suspect]
     Active Substance: PREDNISOLONE
     Dosage: 50 MG, QD
     Route: 048
     Dates: start: 20151120, end: 20160131

REACTIONS (10)
  - Chorioretinopathy [Recovering/Resolving]
  - Quadrantanopia [Unknown]
  - Gastritis [Recovered/Resolved]
  - Visual impairment [Unknown]
  - Inflammation [Unknown]
  - Abdominal pain [Recovered/Resolved]
  - Metastases to meninges [Unknown]
  - Phlebitis [Unknown]
  - Diarrhoea [Recovered/Resolved]
  - Nausea [Recovered/Resolved]

NARRATIVE: CASE EVENT DATE: 20151215
